FAERS Safety Report 12328401 (Version 1)
Quarter: 2016Q2

REPORT INFORMATION
  Report Type: Other
  Country: JP (occurrence: JP)
  Receive Date: 20160503
  Receipt Date: 20160503
  Transmission Date: 20160815
  Serious: No
  Sender: FDA-Public Use
  Company Number: JP-WARNER CHILCOTT, LLC-1051345

PATIENT
  Age: 45 Year
  Sex: Male
  Weight: 62.23 kg

DRUGS (1)
  1. ASACOL [Suspect]
     Active Substance: MESALAMINE
     Indication: COLITIS ULCERATIVE
     Route: 048

REACTIONS (6)
  - Pneumonia [None]
  - Eosinophilic pneumonia [None]
  - Lung infiltration [None]
  - Rales [None]
  - Cough [None]
  - Lung consolidation [None]
